FAERS Safety Report 23405985 (Version 2)
Quarter: 2024Q1

REPORT INFORMATION
  Report Type: Spontaneous
  Country: NL (occurrence: NL)
  Receive Date: 20240116
  Receipt Date: 20240123
  Transmission Date: 20240410
  Serious: Yes (Other)
  Sender: FDA-Public Use
  Company Number: NL-FreseniusKabi-FK202400662

PATIENT
  Age: 67 Year
  Sex: Female
  Weight: 61 kg

DRUGS (1)
  1. OXALIPLATIN [Suspect]
     Active Substance: OXALIPLATIN
     Indication: Pancreatic carcinoma
     Dosage: 150 MG Q2W
     Route: 042
     Dates: start: 20240103, end: 20240103

REACTIONS (3)
  - Facial myokymia [Recovered/Resolved]
  - Swollen tongue [Recovered/Resolved]
  - Palpitations [Recovered/Resolved]

NARRATIVE: CASE EVENT DATE: 20240103
